FAERS Safety Report 18634640 (Version 1)
Quarter: 2020Q4

REPORT INFORMATION
  Report Type: Spontaneous
  Country: US (occurrence: US)
  Receive Date: 20201218
  Receipt Date: 20201218
  Transmission Date: 20210114
  Serious: Yes (Disabling)
  Sender: FDA-Public Use
  Company Number: None

PATIENT
  Age: 67 Year
  Sex: Female
  Weight: 44.55 kg

DRUGS (1)
  1. REPATHA [Suspect]
     Active Substance: EVOLOCUMAB
     Indication: CARDIOVASCULAR DISORDER
     Dosage: ?          QUANTITY:2 INJECTION(S);OTHER FREQUENCY:140MG EVERY 2 WKS;?
     Route: 030
     Dates: start: 20180609, end: 20201218

REACTIONS (2)
  - Type 2 diabetes mellitus [None]
  - Back pain [None]

NARRATIVE: CASE EVENT DATE: 20201217
